FAERS Safety Report 9973349 (Version 3)
Quarter: 2017Q2

REPORT INFORMATION
  Report Type: Spontaneous
  Country: FR (occurrence: FR)
  Receive Date: 20140306
  Receipt Date: 20170526
  Transmission Date: 20170830
  Serious: Yes (Death, Hospitalization, Other)
  Sender: FDA-Public Use
  Company Number: FR-JNJFOC-20140300080

PATIENT
  Sex: Female

DRUGS (2)
  1. REMICADE [Suspect]
     Active Substance: INFLIXIMAB
     Indication: CROHN^S DISEASE
     Dosage: RECEIVED 3 INFUSIONS
     Route: 042
     Dates: start: 20130205, end: 20130514
  2. REMICADE [Suspect]
     Active Substance: INFLIXIMAB
     Indication: CROHN^S DISEASE
     Dosage: RECIEVED 4 INFUSIONS
     Route: 042
     Dates: start: 20120911, end: 20121118

REACTIONS (1)
  - Amyotrophic lateral sclerosis [Not Recovered/Not Resolved]
